FAERS Safety Report 8551406-0 (Version None)
Quarter: 2012Q3

REPORT INFORMATION
  Report Type: 
  Country: None (occurrence: None)
  Receive Date: 20120730
  Receipt Date: 20120330
  Transmission Date: 20120928
  Serious: No
  Sender: FDA-Public Use
  Company Number: US-ALLERGAN-1202751US

PATIENT
  Age: 33 Year
  Sex: Female

DRUGS (4)
  1. OBAGI SKINCARE SYSTEM [Concomitant]
     Indication: PRODUCT USED FOR UNKNOWN INDICATION
     Route: 061
  2. PERMANENT EYELINER [Concomitant]
  3. LATISSE [Suspect]
     Indication: GROWTH OF EYELASHES
     Dosage: 2 GTT, QHS
     Route: 061
     Dates: start: 20110101, end: 20110101
  4. BIRTH CONTROL PILLS [Concomitant]
     Indication: CONTRACEPTION
     Route: 048

REACTIONS (3)
  - SKIN DISCOLOURATION [None]
  - ERYTHEMA OF EYELID [None]
  - EYELID IRRITATION [None]
